FAERS Safety Report 22342768 (Version 4)
Quarter: 2024Q4

REPORT INFORMATION
  Report Type: Report from Study
  Country: CZ (occurrence: CZ)
  Receive Date: 20230519
  Receipt Date: 20241101
  Transmission Date: 20250115
  Serious: Yes (Death, Life-Threatening)
  Sender: AUROBINDO
  Company Number: CZ-MLMSERVICE-20230414-4229144-1

PATIENT
  Age: 33 Year
  Sex: Female
  Weight: 109 kg

DRUGS (4)
  1. ACETAMINOPHEN [Suspect]
     Active Substance: ACETAMINOPHEN
     Indication: Completed suicide
     Dosage: UNK
     Route: 065
  2. TRAMADOL [Suspect]
     Active Substance: TRAMADOL
     Indication: Completed suicide
     Dosage: UNK
     Route: 065
  3. IPRATROPIUM [Concomitant]
     Active Substance: IPRATROPIUM
     Indication: Asthma
     Dosage: UNK
     Route: 065
  4. TESTOSTERONE [Concomitant]
     Active Substance: TESTOSTERONE
     Indication: Hormone replacement therapy
     Dosage: UNK
     Route: 065

REACTIONS (1)
  - Intentional overdose [Fatal]
